FAERS Safety Report 8555367-X (Version None)
Quarter: 2012Q3

REPORT INFORMATION
  Report Type: 
  Country: None (occurrence: None)
  Receive Date: 20120731
  Receipt Date: 20120229
  Transmission Date: 20120928
  Serious: No
  Sender: FDA-Public Use
  Company Number: US-ASTRAZENECA-2011SE39194

PATIENT
  Age: 55 Year
  Sex: Male
  Weight: 72.6 kg

DRUGS (9)
  1. PRISTIQ [Concomitant]
  2. MELOXICAM [Concomitant]
     Indication: ARTHRITIS
  3. ZOLPIDEM [Concomitant]
     Indication: SLEEP DISORDER
  4. KLONOPIN [Concomitant]
  5. SEROQUEL [Suspect]
     Indication: BIPOLAR DISORDER
     Route: 048
  6. SEROQUEL [Suspect]
     Route: 048
  7. SEROQUEL [Suspect]
     Route: 048
  8. BENZONATATE [Concomitant]
     Indication: SINUS DISORDER
  9. SEROQUEL [Suspect]
     Route: 048

REACTIONS (9)
  - MALAISE [None]
  - FATIGUE [None]
  - HYPERHIDROSIS [None]
  - ADVERSE DRUG REACTION [None]
  - FEELING ABNORMAL [None]
  - SOMNOLENCE [None]
  - LETHARGY [None]
  - DRUG DOSE OMISSION [None]
  - NAUSEA [None]
